FAERS Safety Report 5339861-0 (Version None)
Quarter: 2007Q2

REPORT INFORMATION
  Report Type: 
  Country: None (occurrence: None)
  Receive Date: 20070531
  Receipt Date: 20070525
  Transmission Date: 20071010
  Serious: Yes (Other)
  Sender: FDA-Public Use
  Company Number: US-BRACCO-BDI-009623

PATIENT
  Age: 15 Year
  Sex: Female
  Weight: 68 kg

DRUGS (2)
  1. KINEVAC [Suspect]
     Indication: ABDOMINAL PAIN
     Route: 042
     Dates: start: 20070524, end: 20070524
  2. KINEVAC [Suspect]
     Route: 042
     Dates: start: 20070524, end: 20070524

REACTIONS (3)
  - COUGH [None]
  - DYSPNOEA [None]
  - THROAT TIGHTNESS [None]
